FAERS Safety Report 7611202-5 (Version None)
Quarter: 2011Q3

REPORT INFORMATION
  Report Type: 
  Country: None (occurrence: None)
  Receive Date: 20110715
  Receipt Date: 20110705
  Transmission Date: 20111222
  Serious: Yes (Other)
  Sender: FDA-Public Use
  Company Number: CA-JNJFOC-20110703760

PATIENT
  Sex: Male
  Weight: 77 kg

DRUGS (9)
  1. PREDNISONE [Concomitant]
  2. VITAMIN D [Concomitant]
  3. FLOMAX [Concomitant]
  4. COUMADIN [Concomitant]
  5. ALTACE [Concomitant]
  6. SOTALOL HCL [Concomitant]
  7. IMURAN [Concomitant]
  8. REMICADE [Suspect]
     Indication: CROHN'S DISEASE
     Route: 042
     Dates: start: 20050101
  9. PROZAC [Concomitant]

REACTIONS (1)
  - EPHELIDES [None]
